FAERS Safety Report 11255736 (Version 2)
Quarter: 2015Q4

REPORT INFORMATION
  Report Type: Spontaneous
  Country: GB (occurrence: GB)
  Receive Date: 20150709
  Receipt Date: 20151008
  Transmission Date: 20160304
  Serious: Yes (Death)
  Sender: FDA-Public Use
  Company Number: GB-ASTRAZENECA-2015SE64624

PATIENT
  Age: 69 Year
  Sex: Female
  Weight: 63.8 kg

DRUGS (4)
  1. LEVOTHYROXINE SODIUM. [Concomitant]
     Active Substance: LEVOTHYROXINE SODIUM
     Indication: HYPOTHYROIDISM
     Dates: start: 19900409, end: 20150620
  2. DAPAGLIFLOZIN [Concomitant]
     Active Substance: DAPAGLIFLOZIN
     Indication: TYPE 2 DIABETES MELLITUS
     Dosage: 10MG, EVERY DAY, UNIT 3
     Dates: start: 20140311, end: 20150620
  3. MELOXICAM. [Concomitant]
     Active Substance: MELOXICAM
     Indication: PAIN
     Dosage: 7.5 MG, UNKNOWN, UNIT 3
     Dates: start: 20111109, end: 20150620
  4. EXENATIDE [Suspect]
     Active Substance: EXENATIDE
     Indication: TYPE 2 DIABETES MELLITUS
     Dosage: 10 UG, TWO TIMES A DAY, UNIT 4
     Route: 058
     Dates: start: 20090130, end: 20150620

REACTIONS (3)
  - Pulmonary embolism [Fatal]
  - Pancreatic carcinoma metastatic [Fatal]
  - Deep vein thrombosis [Fatal]

NARRATIVE: CASE EVENT DATE: 20150601
